FAERS Safety Report 15887729 (Version 1)
Quarter: 2019Q1

REPORT INFORMATION
  Report Type: Spontaneous
  Country: CN (occurrence: CN)
  Receive Date: 20190130
  Receipt Date: 20190130
  Transmission Date: 20190417
  Serious: Yes (Life-Threatening, Hospitalization, Other)
  Sender: FDA-Public Use
  Company Number: CN-ROCHE-2251761

PATIENT
  Age: 28 Year
  Sex: Female

DRUGS (2)
  1. GANCICLOVIR. [Suspect]
     Active Substance: GANCICLOVIR
     Indication: CYTOMEGALOVIRUS INFECTION
     Route: 042
     Dates: start: 2016
  2. GANCICLOVIR. [Suspect]
     Active Substance: GANCICLOVIR
     Indication: ANTIVIRAL TREATMENT
     Route: 042
     Dates: start: 201611, end: 201611

REACTIONS (6)
  - Agranulocytosis [Recovered/Resolved]
  - Oxygen saturation decreased [Recovering/Resolving]
  - Haemoptysis [Unknown]
  - Pneumonia [Recovering/Resolving]
  - Respiratory failure [Unknown]
  - Pyrexia [Recovering/Resolving]

NARRATIVE: CASE EVENT DATE: 201610
